FAERS Safety Report 14251238 (Version 1)
Quarter: 2017Q4

REPORT INFORMATION
  Report Type: Report from Study
  Country: IE (occurrence: IE)
  Receive Date: 20171205
  Receipt Date: 20171205
  Transmission Date: 20180321
  Serious: Yes (Death, Other)
  Sender: FDA-Public Use
  Company Number: IE-AMGEN-IRLSL2017179249

PATIENT
  Age: 62 Year
  Sex: Male

DRUGS (15)
  1. ASPIRIN. [Concomitant]
     Active Substance: ASPIRIN
     Dosage: 75 MG, QD
     Route: 050
  2. GLUCOPHAGE [Concomitant]
     Active Substance: METFORMIN HYDROCHLORIDE
     Dosage: 500 MG, BID
     Route: 050
  3. DEXAMETHASONE. [Concomitant]
     Active Substance: DEXAMETHASONE
     Dosage: 4 MG, BID
     Route: 050
  4. EMEND [Concomitant]
     Active Substance: APREPITANT
     Dosage: 80 MG, QD
     Route: 050
  5. SENOKOT [Concomitant]
     Active Substance: SENNOSIDES
     Dosage: UNK UNK, AS NECESSARY (2 N/A)
     Route: 050
  6. EUCARDIC [Concomitant]
     Dosage: 50 MG, BID
     Route: 050
  7. LECALPIN [Concomitant]
     Dosage: 10 MG, QD
     Route: 050
  8. FUROSEMIDE. [Concomitant]
     Active Substance: FUROSEMIDE
     Dosage: 40 MG, QD
     Route: 050
  9. ZOTON [Concomitant]
     Active Substance: LANSOPRAZOLE
     Dosage: 30 MG, QD
     Route: 050
  10. IMODIUM [Concomitant]
     Active Substance: LOPERAMIDE HYDROCHLORIDE
     Dosage: 2 MG, AS NECESSARY
     Route: 050
  11. MOTILIUM [Concomitant]
     Active Substance: DOMPERIDONE
     Dosage: 10 MG, AS NECESSARY
     Route: 050
  12. INSPRA [Concomitant]
     Active Substance: EPLERENONE
     Dosage: 25 MG, QD
     Route: 050
  13. TRAMADOL. [Concomitant]
     Active Substance: TRAMADOL
     Dosage: 50 MG, AS NECESSARY
     Route: 050
  14. NEULASTA [Suspect]
     Active Substance: PEGFILGRASTIM
     Indication: PRODUCT USED FOR UNKNOWN INDICATION
     Dosage: 6 MG, Q3WK (POST CHEMOTHERAPY 3 WEEKLY CYCLE)
     Route: 058
  15. LIPITOR [Concomitant]
     Active Substance: ATORVASTATIN CALCIUM
     Dosage: 40 MG, QD
     Route: 050

REACTIONS (1)
  - Death [Fatal]
